FAERS Safety Report 25060366 (Version 1)
Quarter: 2025Q1

REPORT INFORMATION
  Report Type: Spontaneous
  Country: GB (occurrence: GB)
  Receive Date: 20250310
  Receipt Date: 20250310
  Transmission Date: 20250409
  Serious: Yes (Other)
  Sender: ELI LILLY AND COMPANY
  Company Number: GB-MHRA-EMIS-12402-77496ab3-9460-4a02-b17d-daaea7e57a17

PATIENT
  Age: 27 Year
  Sex: Female
  Weight: 76 kg

DRUGS (4)
  1. MOUNJARO [Suspect]
     Active Substance: TIRZEPATIDE
     Indication: Product used for unknown indication
     Dosage: 2.5 MG, WEEKLY (1/W)
     Route: 058
     Dates: start: 20250204, end: 20250206
  2. CITALOPRAM [Concomitant]
     Active Substance: CITALOPRAM
     Indication: Product used for unknown indication
     Dosage: 1 DOSAGE FORM, DAILY
     Dates: start: 20241114, end: 20241213
  3. SERTRALINE [Concomitant]
     Active Substance: SERTRALINE HYDROCHLORIDE
     Indication: Anxiety disorder
     Dosage: 1 DOSAGE FORM, DAILY
     Dates: start: 20241128
  4. OMEPRAZOLE [Concomitant]
     Active Substance: OMEPRAZOLE
     Indication: Product used for unknown indication
     Dosage: 4 DOSAGE FORM, DAILY
     Dates: start: 20250206

REACTIONS (4)
  - Gastritis [Unknown]
  - Vomiting [Unknown]
  - Abdominal pain upper [Unknown]
  - Eructation [Unknown]

NARRATIVE: CASE EVENT DATE: 20250205
